FAERS Safety Report 10082143 (Version 4)
Quarter: 2014Q2

REPORT INFORMATION
  Report Type: Report from Study
  Country: IL (occurrence: IL)
  Receive Date: 20140416
  Receipt Date: 20140506
  Transmission Date: 20141212
  Serious: Yes (Hospitalization)
  Sender: FDA-Public Use
  Company Number: IL-B.I. PHARMACEUTICALS,INC./RIDGEFIELD-2014-BI-14991BI

PATIENT
  Age: 61 Year
  Sex: Female
  Weight: 62.1 kg

DRUGS (7)
  1. BIBW 2992 [Suspect]
     Indication: NON-SMALL CELL LUNG CANCER
     Dosage: 40 MG
     Route: 048
     Dates: start: 20140314, end: 20140401
  2. CALCIUM + VIT D TABLET [Concomitant]
     Dosage: 1 ANZ
     Route: 048
     Dates: start: 20140310
  3. VABEN [Concomitant]
     Indication: INSOMNIA
     Dosage: 10 MG
     Route: 048
     Dates: start: 201402
  4. STOPIT [Concomitant]
     Indication: DIARRHOEA
     Dosage: 2 MG
     Route: 048
     Dates: start: 201403
  5. DEXAMETHASONE [Concomitant]
     Indication: FATIGUE
     Dosage: 8 MG
     Route: 042
     Dates: start: 20140331, end: 20140331
  6. PRAMIN [Concomitant]
     Indication: ANTIEMETIC SUPPORTIVE CARE
     Dosage: 10 MG
     Route: 042
     Dates: start: 20140331, end: 20140331
  7. ZANTAC [Concomitant]
     Indication: ANTIEMETIC SUPPORTIVE CARE
     Dosage: 50 MG
     Route: 042
     Dates: start: 20140331, end: 20140331

REACTIONS (5)
  - Hypokalaemia [Recovered/Resolved]
  - Hyponatraemia [Recovered/Resolved]
  - Hypophosphataemia [Recovered/Resolved]
  - Diarrhoea [Recovered/Resolved]
  - Fatigue [Recovered/Resolved]
